FAERS Safety Report 6893006-4 (Version None)
Quarter: 2010Q3

REPORT INFORMATION
  Report Type: 
  Country: None (occurrence: None)
  Receive Date: 20100731
  Receipt Date: 20090110
  Transmission Date: 20110219
  Serious: Yes (Other)
  Sender: FDA-Public Use
  Company Number: US-PFIZER INC-2008155910

PATIENT
  Sex: Male
  Weight: 81.633 kg

DRUGS (4)
  1. ALPROSTADIL [Suspect]
     Dosage: 40 UG, AS NEEDED
  2. LIPITOR [Concomitant]
     Dosage: UNK
  3. ATENOLOL [Concomitant]
     Dosage: UNK
  4. PLAVIX [Concomitant]
     Dosage: UNK

REACTIONS (2)
  - PROSTATITIS [None]
  - RASH [None]
